FAERS Safety Report 5364205-8 (Version None)
Quarter: 2007Q2

REPORT INFORMATION
  Report Type: 
  Country: None (occurrence: None)
  Receive Date: 20070530
  Receipt Date: 20070104
  Transmission Date: 20071010
  Serious: No
  Sender: FDA-Public Use
  Company Number: 2007PV027868

PATIENT
  Age: 64 Year
  Sex: Female
  Weight: 87.0906 kg

DRUGS (4)
  1. BYETTA [Suspect]
     Indication: DIABETES MELLITUS NON-INSULIN-DEPENDENT
     Dosage: 5 MCG; BID; SC
     Route: 058
     Dates: start: 20070101
  2. METFORMIN HCL [Concomitant]
  3. AVANDIA [Concomitant]
  4. GLIPIZIDE [Concomitant]

REACTIONS (5)
  - CONDITION AGGRAVATED [None]
  - DECREASED APPETITE [None]
  - DRUG INEFFECTIVE [None]
  - PAIN IN EXTREMITY [None]
  - WEIGHT DECREASED [None]
